FAERS Safety Report 10240618 (Version 1)
Quarter: 2014Q2

REPORT INFORMATION
  Report Type: Spontaneous
  Country: US (occurrence: None)
  Receive Date: 20140613
  Receipt Date: 20140613
  Transmission Date: 20141212
  Serious: Yes (Other)
  Sender: FDA-Public Use
  Company Number: None

PATIENT
  Age: 55 Year
  Sex: Female
  Weight: 52.16 kg

DRUGS (2)
  1. LEVOFLOXACIN [Suspect]
     Indication: SINUSITIS
     Dosage: LEVOFLOXACIN 500 MG- ONCE/DAY ONCE DAILY TAKEN BY MOUTH
     Route: 048
     Dates: start: 20140108, end: 20140113
  2. LEVOFLOXACIN [Suspect]
     Indication: INFLUENZA
     Dosage: LEVOFLOXACIN 500 MG- ONCE/DAY ONCE DAILY TAKEN BY MOUTH
     Route: 048
     Dates: start: 20140108, end: 20140113

REACTIONS (4)
  - Tendon pain [None]
  - Tendon disorder [None]
  - Musculoskeletal stiffness [None]
  - Pain in extremity [None]
